FAERS Safety Report 5089567-0 (Version None)
Quarter: 2006Q3

REPORT INFORMATION
  Report Type: 
  Country: None (occurrence: None)
  Receive Date: 20060822
  Receipt Date: 20060810
  Transmission Date: 20061208
  Serious: Yes (Life-Threatening, Hospitalization)
  Sender: FDA-Public Use
  Company Number: 2006098279

PATIENT
  Age: 40 Year
  Sex: Female

DRUGS (1)
  1. AMLODIPINE [Suspect]
     Indication: DRUG USE FOR UNKNOWN INDICATION
     Dosage: 1000 MG (10 MG), ORAL
     Route: 048

REACTIONS (7)
  - ACUTE RESPIRATORY DISTRESS SYNDROME [None]
  - DEVICE RELATED INFECTION [None]
  - HYPOTENSION [None]
  - ILEUS [None]
  - INCORRECT DOSE ADMINISTERED [None]
  - PNEUMONIA [None]
  - SUICIDE ATTEMPT [None]
